FAERS Safety Report 5472683-9 (Version None)
Quarter: 2007Q3

REPORT INFORMATION
  Report Type: 
  Country: None (occurrence: None)
  Receive Date: 20070926
  Receipt Date: 20070919
  Transmission Date: 20080115
  Serious: Yes (Other)
  Sender: FDA-Public Use
  Company Number: 2007SP010923

PATIENT
  Age: 31 Year
  Sex: Female
  Weight: 49 kg

DRUGS (9)
  1. TEMODAL [Suspect]
     Indication: ANAPLASTIC ASTROCYTOMA
     Dosage: 75 MG/M2;QD;PO, 150 MG/M2;QD;PO
     Route: 048
     Dates: start: 20070209, end: 20070323
  2. TEMODAL [Suspect]
     Indication: ANAPLASTIC ASTROCYTOMA
     Dosage: 75 MG/M2;QD;PO, 150 MG/M2;QD;PO
     Route: 048
     Dates: start: 20070514, end: 20070518
  3. TEMODAL [Suspect]
     Indication: ANAPLASTIC ASTROCYTOMA
     Dosage: 75 MG/M2;QD;PO, 150 MG/M2;QD;PO
     Route: 048
     Dates: start: 20070627, end: 20070701
  4. TEMODAL [Suspect]
     Indication: ANAPLASTIC ASTROCYTOMA
     Dosage: 75 MG/M2;QD;PO, 150 MG/M2;QD;PO
     Route: 048
     Dates: start: 20070725, end: 20070729
  5. TEMODAL [Suspect]
     Indication: ANAPLASTIC ASTROCYTOMA
     Dosage: 75 MG/M2;QD;PO, 150 MG/M2;QD;PO
     Route: 048
     Dates: start: 20070822, end: 20070826
  6. BAKTAR [Concomitant]
  7. PREDONINE [Concomitant]
  8. BARACLUDE [Concomitant]
  9. TAGAMET [Concomitant]

REACTIONS (1)
  - PULMONARY TUBERCULOSIS [None]
